FAERS Safety Report 23574789 (Version 1)
Quarter: 2024Q1

REPORT INFORMATION
  Report Type: Spontaneous
  Country: KR (occurrence: KR)
  Receive Date: 20240228
  Receipt Date: 20240228
  Transmission Date: 20240410
  Serious: Yes (Hospitalization)
  Sender: FDA-Public Use
  Company Number: KR-SA-SAC20240227000773

PATIENT
  Age: 53 Year
  Sex: Female
  Weight: 173 kg

DRUGS (23)
  1. ZALTRAP [Suspect]
     Active Substance: ZIV-AFLIBERCEPT
     Indication: Colorectal cancer
     Dosage: 4 MG/KG, Q3W
     Route: 065
     Dates: start: 20211228
  2. ZALTRAP [Suspect]
     Active Substance: ZIV-AFLIBERCEPT
     Indication: Chemotherapy
  3. IRINOTECAN HYDROCHLORIDE [Suspect]
     Active Substance: IRINOTECAN HYDROCHLORIDE
     Indication: Chemotherapy
     Dosage: 150 MG/M2, Q3W
     Route: 065
     Dates: start: 20211228
  4. LEUCOVORIN CALCIUM [Suspect]
     Active Substance: LEUCOVORIN CALCIUM
     Indication: Chemotherapy
     Dosage: 400 MG/M2, Q3W
     Route: 065
     Dates: start: 20211228
  5. FLUOROURACIL [Suspect]
     Active Substance: FLUOROURACIL
     Indication: Chemotherapy
     Dosage: 2400 MG/M2, Q3W
     Route: 065
     Dates: start: 20211228
  6. FLUOROURACIL [Suspect]
     Active Substance: FLUOROURACIL
     Dosage: 400 MG/M2, Q3W
     Route: 065
     Dates: start: 20211228
  7. SODIUM BICARBONATE [Concomitant]
     Active Substance: SODIUM BICARBONATE
     Indication: Stomatitis
     Dosage: 1 G
     Route: 065
     Dates: start: 20210324
  8. BENZYDAMINE HYDROCHLORIDE [Concomitant]
     Active Substance: BENZYDAMINE HYDROCHLORIDE
     Indication: Stomatitis
     Dosage: 100 ML
     Route: 065
     Dates: start: 20210324
  9. CELECOXIB [Concomitant]
     Active Substance: CELECOXIB
     Indication: Tumour pain
     Dosage: 200 MG
     Route: 065
     Dates: start: 20220210
  10. PREGABALIN [Concomitant]
     Active Substance: PREGABALIN
     Indication: Tumour pain
     Dosage: 75 MG
     Route: 065
     Dates: start: 20220210
  11. OXYCODONE HYDROCHLORIDE [Concomitant]
     Active Substance: OXYCODONE HYDROCHLORIDE
     Indication: Tumour pain
     Dosage: 5 MG
     Route: 065
     Dates: start: 20220120
  12. RAMOSETRON HYDROCHLORIDE [Concomitant]
     Active Substance: RAMOSETRON HYDROCHLORIDE
     Indication: Prophylaxis of nausea and vomiting
     Dosage: 0.1 MG
     Route: 065
     Dates: start: 20220318
  13. FENTANYL [Concomitant]
     Active Substance: FENTANYL\FENTANYL CITRATE
     Indication: Tumour pain
     Dosage: 4.2 MG
     Route: 065
     Dates: start: 20220321
  14. MEPERIDINE HYDROCHLORIDE [Concomitant]
     Active Substance: MEPERIDINE HYDROCHLORIDE
     Indication: Tumour pain
     Dosage: 25 MG
     Route: 065
     Dates: start: 20220311
  15. PROPACETAMOL HYDROCHLORIDE [Concomitant]
     Active Substance: PROPACETAMOL HYDROCHLORIDE
     Indication: Pyrexia
     Dosage: 1 G
     Route: 065
     Dates: start: 20220310
  16. FUROSEMIDE [Concomitant]
     Active Substance: FUROSEMIDE
     Indication: Oedema
     Dosage: 20 MG
     Route: 065
     Dates: start: 20220323
  17. METOCLOPRAMIDE [Concomitant]
     Active Substance: METOCLOPRAMIDE
     Indication: Prophylaxis of nausea and vomiting
     Dosage: 10 MG
     Route: 065
     Dates: start: 20220404
  18. CHLORPHENIRAMINE MALEATE [Concomitant]
     Active Substance: CHLORPHENIRAMINE MALEATE
     Indication: Insomnia
     Dosage: 4 MG
     Route: 065
     Dates: start: 20220404
  19. NALOXONE HYDROCHLORIDE [Concomitant]
     Active Substance: NALOXONE HYDROCHLORIDE
     Indication: Drug toxicity prophylaxis
     Dosage: 0.4 MG
     Route: 065
     Dates: start: 20220405
  20. NOREPINEPHRINE BITARTRATE [Concomitant]
     Active Substance: NOREPINEPHRINE BITARTRATE
     Indication: Hypotension
     Dosage: 40 MG
     Route: 065
     Dates: start: 20220405
  21. CIMETROPIUM BROMIDE [Concomitant]
     Active Substance: CIMETROPIUM BROMIDE
     Indication: Endoscopic retrograde cholangiopancreatography
     Dosage: 10 MG
     Route: 065
     Dates: start: 20220314, end: 20220314
  22. NORMAL SERUM ALBUM [Concomitant]
     Indication: Hypoalbuminaemia
     Dosage: 100 ML
     Route: 065
     Dates: start: 20220311
  23. ACETAMINOPHEN\CODEINE\IBUPROFEN [Concomitant]
     Active Substance: ACETAMINOPHEN\CODEINE\IBUPROFEN
     Indication: Tumour pain
     Dosage: 1 CURIE;UNK
     Route: 065
     Dates: start: 20220120

REACTIONS (1)
  - Jaundice [Not Recovered/Not Resolved]

NARRATIVE: CASE EVENT DATE: 20220310
